FAERS Safety Report 13167880 (Version 1)
Quarter: 2017Q1

REPORT INFORMATION
  Report Type: Report from Study
  Country: IT (occurrence: IT)
  Receive Date: 20170131
  Receipt Date: 20170131
  Transmission Date: 20170428
  Serious: Yes (Death)
  Sender: FDA-Public Use
  Company Number: IT-PFIZER INC-2017034122

PATIENT
  Sex: Male

DRUGS (7)
  1. METHOTREXATE. [Suspect]
     Active Substance: METHOTREXATE
     Dosage: 200 MG/M2, IN 500 ML NS OVER 12H DAY 1, CYCLIC
  2. DACTINOMYCIN [Suspect]
     Active Substance: DACTINOMYCIN
     Indication: GERM CELL NEOPLASM
     Dosage: 0.5 MG, DAY 1 AND DAY 2, CYCLIC
     Route: 040
  3. FOLINIC ACID [Suspect]
     Active Substance: LEUCOVORIN
     Indication: GERM CELL NEOPLASM
     Dosage: 25 MG, EVERY 6 H DAYS 2 AND 3, FOR 8 ADMINISTRATIONS STARTING 24H AFTER START OF METHOTREXATE,CYCLIC
     Route: 048
  4. VINCRISTINE SULFATE. [Suspect]
     Active Substance: VINCRISTINE SULFATE
     Indication: GERM CELL NEOPLASM
     Dosage: 1 MG/M2, (MAXIMUM 2 MG) DAY 8, EVERY 21 DAYS, CYCLIC
  5. CYCLOPHOSPHAMIDE. [Suspect]
     Active Substance: CYCLOPHOSPHAMIDE
     Indication: GERM CELL NEOPLASM
     Dosage: 600 MG/M2, IN 250 ML NS OVER 30 MIN, EVERY 21 DAYS, CYCLIC
  6. ETOPOSIDE. [Suspect]
     Active Substance: ETOPOSIDE
     Indication: GERM CELL NEOPLASM
     Dosage: 100 MG/M2, IN 250 ML NS OVER 1H DAY 1 AND DAY 2, CYCLIC
  7. METHOTREXATE. [Suspect]
     Active Substance: METHOTREXATE
     Indication: GERM CELL NEOPLASM
     Dosage: 100 MG/M2, IN 100 ML NS OVER 15 MIN DAY 1, CYCLIC

REACTIONS (1)
  - Cerebral haemorrhage [Fatal]
